FAERS Safety Report 7803845-0 (Version None)
Quarter: 2011Q4

REPORT INFORMATION
  Report Type: 
  Country: None (occurrence: None)
  Receive Date: 20111010
  Receipt Date: 20110926
  Transmission Date: 20120403
  Serious: Yes (Hospitalization)
  Sender: FDA-Public Use
  Company Number: US-JNJFOC-20110911213

PATIENT
  Sex: Female
  Weight: 90.72 kg

DRUGS (8)
  1. FLEXERIL [Concomitant]
     Indication: MUSCLE RELAXANT THERAPY
     Route: 048
  2. LORTAB [Concomitant]
     Indication: PAIN
     Route: 048
  3. METHOTREXATE [Concomitant]
     Indication: RHEUMATOID ARTHRITIS
     Route: 042
     Dates: start: 20100101
  4. SYNTHROID [Concomitant]
     Indication: THYROID DISORDER
     Route: 048
     Dates: end: 20110101
  5. HYDROCHLOROTHIAZIDE [Concomitant]
     Indication: FLUID REPLACEMENT
     Route: 048
  6. SIMPONI [Suspect]
     Indication: RHEUMATOID ARTHRITIS
     Route: 058
     Dates: start: 20100101, end: 20110101
  7. SYNTHROID [Concomitant]
     Route: 048
     Dates: start: 20110101
  8. CRESTOR [Concomitant]
     Indication: BLOOD CHOLESTEROL ABNORMAL
     Route: 048

REACTIONS (6)
  - INFUSION SITE SWELLING [None]
  - BLOOD SODIUM DECREASED [None]
  - BLOOD POTASSIUM DECREASED [None]
  - INFUSION SITE PAIN [None]
  - THYROID DISORDER [None]
  - MENINGITIS VIRAL [None]
